FAERS Safety Report 21915985 (Version 1)
Quarter: 2023Q1

REPORT INFORMATION
  Report Type: Spontaneous
  Country: US (occurrence: None)
  Receive Date: 20230125
  Receipt Date: 20230125
  Transmission Date: 20230418
  Serious: No
  Sender: FDA-Public Use
  Company Number: None

PATIENT
  Age: 54 Year
  Sex: Female

DRUGS (2)
  1. COSENTYX [Suspect]
     Active Substance: SECUKINUMAB
     Indication: Ankylosing spondylitis
     Dosage: INJECT 150MG (1 PEN) SUBCUTANEOUSLY ON DAY 28 (DOSE 5) THEN EVERY 4 WEEKS AS DIRECTED    ?
     Route: 058
     Dates: start: 202212
  2. COSENTYX [Suspect]
     Active Substance: SECUKINUMAB
     Dosage: FREQUENCY : MONTHLY;?
     Route: 058

REACTIONS (1)
  - Urinary tract infection [None]
